FAERS Safety Report 13349591 (Version 3)
Quarter: 2017Q2

REPORT INFORMATION
  Report Type: Report from Study
  Country: CO (occurrence: CO)
  Receive Date: 20170320
  Receipt Date: 20170602
  Transmission Date: 20170830
  Serious: Yes (Other)
  Sender: FDA-Public Use
  Company Number: PHHY2016CO137428

PATIENT
  Age: 65 Year
  Sex: Female
  Weight: 65 kg

DRUGS (4)
  1. SANDOSTATIN LAR DEPOT [Suspect]
     Active Substance: OCTREOTIDE ACETATE
     Dosage: 40 MG/KG, QMO
     Route: 030
     Dates: start: 20141016
  2. SANDOSTATIN LAR DEPOT [Suspect]
     Active Substance: OCTREOTIDE ACETATE
     Dosage: 20 MG, QMO
     Route: 030
  3. SANDOSTATIN LAR DEPOT [Suspect]
     Active Substance: OCTREOTIDE ACETATE
     Indication: ACROMEGALY
     Dosage: 20 MG, QMO (2 AMPOULES MONTHLY)
     Route: 030
     Dates: start: 20130201
  4. SANDOSTATIN LAR DEPOT [Suspect]
     Active Substance: OCTREOTIDE ACETATE
     Dosage: 30 MG, UNK
     Route: 030

REACTIONS (8)
  - Asthenia [Unknown]
  - Skeletal injury [Unknown]
  - Hormone level abnormal [Unknown]
  - Incorrect dose administered [Unknown]
  - Drug ineffective [Unknown]
  - Headache [Unknown]
  - Abdominal pain [Unknown]
  - Soft tissue injury [Unknown]

NARRATIVE: CASE EVENT DATE: 20160908
